FAERS Safety Report 5340127-3 (Version None)
Quarter: 2007Q2

REPORT INFORMATION
  Report Type: 
  Country: None (occurrence: None)
  Receive Date: 20070525
  Receipt Date: 20070525
  Transmission Date: 20071010
  Serious: Yes (Hospitalization)
  Sender: FDA-Public Use
  Company Number: None

PATIENT
  Age: 55 Year
  Sex: Female

DRUGS (10)
  1. OXYCONTIN [Suspect]
     Indication: PAIN
     Dosage: 5/325 1-2 PO Q 4H PRN
     Route: 048
     Dates: start: 20060707, end: 20060709
  2. OXYCODONE HCL AND ACETAMINOPHEN [Suspect]
     Indication: PAIN
     Dosage: 20 MG PO Q12H
     Route: 048
     Dates: start: 20060707, end: 20060709
  3. ASPIRIN [Concomitant]
  4. PRAVASTATIN [Concomitant]
  5. REGLAN [Concomitant]
  6. LYRICA [Concomitant]
  7. ATENOLOL [Concomitant]
  8. DIOVAN [Concomitant]
  9. PREMARIN [Concomitant]
  10. CYMBALTA [Concomitant]

REACTIONS (4)
  - HYPOTENSION [None]
  - MENTAL STATUS CHANGES [None]
  - SOMNOLENCE [None]
  - THERAPEUTIC RESPONSE DECREASED [None]
